FAERS Safety Report 23889167 (Version 1)
Quarter: 2024Q2

REPORT INFORMATION
  Report Type: Spontaneous
  Country: US (occurrence: None)
  Receive Date: 20240523
  Receipt Date: 20240523
  Transmission Date: 20240716
  Serious: Yes (Hospitalization)
  Sender: FDA-Public Use
  Company Number: None

PATIENT
  Age: 80 Year
  Sex: Female
  Weight: 69.8 kg

DRUGS (1)
  1. DAPTOMYCIN [Suspect]
     Active Substance: DAPTOMYCIN
     Dates: start: 20240510, end: 20240521

REACTIONS (3)
  - Asthenia [None]
  - Dyspnoea [None]
  - Pneumonitis [None]

NARRATIVE: CASE EVENT DATE: 20240521
